FAERS Safety Report 22283244 (Version 2)
Quarter: 2023Q2

REPORT INFORMATION
  Report Type: Spontaneous
  Country: AU (occurrence: AU)
  Receive Date: 20230504
  Receipt Date: 20230530
  Transmission Date: 20230722
  Serious: Yes (Death, Life-Threatening, Hospitalization, Other)
  Sender: FDA-Public Use
  Company Number: None

PATIENT
  Age: 51 Year
  Sex: Male
  Weight: 67.5 kg

DRUGS (12)
  1. ETOPOSIDE [Suspect]
     Active Substance: ETOPOSIDE
     Indication: Haemophagocytic lymphohistiocytosis
     Dosage: 1357.5 MILLIGRAM, ONCE IN CYCLE, D1,4,8,11,14 ( D1-20 MAY 2019) ETOPOSIDE (150 MG/M^2) IN N/SALINE 1
     Route: 042
     Dates: start: 20190520, end: 20190611
  2. CYCLOSPORINE [Suspect]
     Active Substance: CYCLOSPORINE
     Indication: Aplastic anaemia
     Dosage: 400 MILLIGRAM, ONCE IN CYCLE, D1 CYCLOSPORIN (3MG/KG) 200MG BD-CYCLE 1 OF 1
     Route: 065
     Dates: start: 20190510, end: 20190515
  3. ALLOPURINOL [Suspect]
     Active Substance: ALLOPURINOL
     Indication: Colitis ulcerative
     Dosage: UNK
     Route: 065
  4. DEXAMETHASONE [Suspect]
     Active Substance: DEXAMETHASONE
     Indication: Haemophagocytic lymphohistiocytosis
     Dosage: D1,4,8,11,14 (D1-20 MAY 2019) DEXAMETHASONE (10MG/ M^2) -20MG DAILY
     Route: 065
     Dates: start: 20190520, end: 20190611
  5. THYMOCYTE IMMUNE GLOBULIN NOS [Suspect]
     Active Substance: THYMOCYTE IMMUNE GLOBULIN NOS
     Indication: Aplastic anaemia
     Dosage: 10880 MILLIGRAM, ONCE IN CYCLE, D1-4  ANTITHYMOCYTE GLOBULIN (EQUINE) (40MG/KG) IN N/SALINE 1L FOR
     Route: 042
     Dates: start: 20190510, end: 20190514
  6. METHYLPREDNISOLONE [Suspect]
     Active Substance: METHYLPREDNISOLONE
     Indication: Aplastic anaemia
     Dosage: 280 MILLIGRAM, ONCE IN CYCLE, D1-4 (10-14 MAY 2019) METHYLPREDNISOLONE (1MG/KG) IN N/SALINE 100ML FO
     Route: 042
     Dates: start: 20190510, end: 20190514
  7. AZATHIOPRINE [Concomitant]
     Active Substance: AZATHIOPRINE
     Indication: Colitis ulcerative
     Dosage: UNK
     Route: 065
  8. MESALAMINE [Concomitant]
     Active Substance: MESALAMINE
     Indication: Colitis ulcerative
     Dosage: UNK
     Route: 065
  9. ALLOPURINOL [Concomitant]
     Active Substance: ALLOPURINOL
     Indication: Colitis ulcerative
     Dosage: UNK
     Route: 065
  10. SODIUM CHLORIDE [Concomitant]
     Active Substance: SODIUM CHLORIDE
     Indication: Product used for unknown indication
     Dosage: D1,4,8,11,14 ( D1-20 MAY 2019) ETOPOSIDE (150 MG/M^2) IN N/SALINE 1L FOR IV INFUSION OVER 60 MINUTES
     Route: 042
     Dates: start: 20190520, end: 20190611
  11. SODIUM CHLORIDE [Concomitant]
     Active Substance: SODIUM CHLORIDE
     Dosage: D1-4 (10-14 MAY 2019) METHYLPREDNISOLONE (1MG/KG) IN N/SALINE 100ML FOR IV INFUSION OVER 30 MINUTES)
     Route: 042
     Dates: start: 20190510, end: 20190514
  12. SODIUM CHLORIDE [Concomitant]
     Active Substance: SODIUM CHLORIDE
     Dosage: D1-4  ANTITHYMOCYTE GLOBULIN (EQUINE) (40MG/KG) IN N/SALINE 1L FOR  IV INFUSION OVER 4-6 HOURS
     Route: 042
     Dates: start: 20190510, end: 20190514

REACTIONS (7)
  - Systemic candida [Fatal]
  - Fournier^s gangrene [Fatal]
  - Pseudomonal sepsis [Fatal]
  - Candida infection [Fatal]
  - Pseudomonas infection [Fatal]
  - Pseudomonal bacteraemia [Fatal]
  - Off label use [Unknown]

NARRATIVE: CASE EVENT DATE: 20190501
